FAERS Safety Report 5222955-8 (Version None)
Quarter: 2007Q1

REPORT INFORMATION
  Report Type: 
  Country: None (occurrence: None)
  Receive Date: 20061208
  Receipt Date: 20060328
  Transmission Date: 20070707
  Serious: Yes (Hospitalization, Other)
  Sender: FDA-Public Use
  Company Number: 2006043487

PATIENT
  Sex: Male
  Weight: 88.4514 kg

DRUGS (5)
  1. VIAGRA [Suspect]
     Indication: ERECTILE DYSFUNCTION
     Dosage: 100 MG (100 MG), ORAL
     Route: 048
  2. PLAVIX [Concomitant]
  3. ACETYLSALICYLIC ACID SRT [Concomitant]
  4. METOPROLOL TARTRATE [Concomitant]
  5. ZOCOR [Concomitant]

REACTIONS (5)
  - HEADACHE [None]
  - INSOMNIA [None]
  - MEMORY IMPAIRMENT [None]
  - MYOCARDIAL INFARCTION [None]
  - NASAL CONGESTION [None]
